FAERS Safety Report 24530440 (Version 1)
Quarter: 2024Q4

REPORT INFORMATION
  Report Type: Report from Study
  Country: JP (occurrence: JP)
  Receive Date: 20241021
  Receipt Date: 20241021
  Transmission Date: 20250115
  Serious: Yes (Other)
  Sender: UCB
  Company Number: JP-UCBJ-CD202409560UCBPHAPROD

PATIENT
  Age: 40 Year
  Sex: Male

DRUGS (3)
  1. FENFLURAMINE HYDROCHLORIDE [Suspect]
     Active Substance: FENFLURAMINE HYDROCHLORIDE
     Indication: Lennox-Gastaut syndrome
     Dosage: UNK
     Route: 048
     Dates: start: 20240701
  2. FENFLURAMINE HYDROCHLORIDE [Suspect]
     Active Substance: FENFLURAMINE HYDROCHLORIDE
     Dosage: 0.41 MILLIGRAM/KILOGRAM, ONCE DAILY (QD)
     Route: 048
  3. PHENYTOIN [Suspect]
     Active Substance: PHENYTOIN
     Indication: Product used for unknown indication
     Dosage: UNK

REACTIONS (3)
  - Epilepsy [Not Recovered/Not Resolved]
  - Dizziness [Not Recovered/Not Resolved]
  - Anticonvulsant drug level increased [Unknown]

NARRATIVE: CASE EVENT DATE: 20240902
